FAERS Safety Report 7561832-4 (Version None)
Quarter: 2011Q2

REPORT INFORMATION
  Report Type: 
  Country: None (occurrence: None)
  Receive Date: 20110621
  Receipt Date: 20110615
  Transmission Date: 20111010
  Serious: Yes (Hospitalization)
  Sender: FDA-Public Use
  Company Number: US-B.I. PHARMACEUTICALS,INC./RIDGEFIELD-2011-BP-15427BP

PATIENT
  Sex: Female

DRUGS (6)
  1. LISINOPRIL [Concomitant]
     Indication: HYPERTENSION
  2. ATENOLOL [Concomitant]
     Indication: HYPERTENSION
  3. XANAX [Concomitant]
  4. ZYRTEC [Concomitant]
  5. PRADAXA [Suspect]
     Indication: ATRIAL FIBRILLATION
     Dosage: 300 MG
     Route: 048
     Dates: end: 20110501
  6. DITROPAN [Concomitant]
     Dosage: 5 MG
     Route: 048

REACTIONS (2)
  - HAEMOGLOBIN DECREASED [None]
  - MELAENA [None]
